FAERS Safety Report 7459502-6 (Version None)
Quarter: 2011Q2

REPORT INFORMATION
  Report Type: 
  Country: None (occurrence: None)
  Receive Date: 20110505
  Receipt Date: 20110427
  Transmission Date: 20111010
  Serious: Yes (Death, Other)
  Sender: FDA-Public Use
  Company Number: JP-GENZYME-THYM-1001739

PATIENT
  Sex: Female
  Weight: 45 kg

DRUGS (10)
  1. TACROLIMUS [Concomitant]
     Indication: GRAFT VERSUS HOST DISEASE
     Dosage: UNK
     Dates: start: 20100709, end: 20100724
  2. BIAPENEM [Concomitant]
     Indication: INFECTION PROPHYLAXIS
     Dosage: UNK
     Dates: start: 20100615, end: 20100724
  3. METHOTREXATE [Concomitant]
     Indication: PROPHYLAXIS AGAINST GRAFT VERSUS HOST DISEASE
     Dosage: UNK
     Dates: start: 20100507, end: 20100512
  4. CARPERITIDE [Concomitant]
     Indication: CONGESTIVE CARDIOMYOPATHY
     Dosage: UNK
     Dates: start: 20100528, end: 20100724
  5. POTASSIUM CANRENOATE [Concomitant]
     Indication: CONGESTIVE CARDIOMYOPATHY
     Dosage: UNK
     Dates: start: 20100528, end: 20100724
  6. THYMOGLOBULIN [Suspect]
     Indication: ACUTE GRAFT VERSUS HOST DISEASE
     Dosage: 50 MG, QD
     Route: 042
     Dates: start: 20100714, end: 20100714
  7. FUROSEMIDE [Concomitant]
     Indication: CONGESTIVE CARDIOMYOPATHY
     Dosage: UNK
     Dates: start: 20100528, end: 20100724
  8. METHYLPREDNISOLONE SODIUM SUCCINATE [Concomitant]
     Indication: GRAFT VERSUS HOST DISEASE
     Dosage: UNK
     Dates: start: 20100530, end: 20100724
  9. FOSCARNET SODIUM [Concomitant]
     Indication: ANTIVIRAL PROPHYLAXIS
     Dosage: UNK
     Dates: start: 20100705, end: 20100724
  10. DOBUTAMINE HYDROCHLORIDE [Concomitant]
     Indication: CONGESTIVE CARDIOMYOPATHY
     Dosage: UNK
     Dates: start: 20100528, end: 20100724

REACTIONS (6)
  - CONGESTIVE CARDIOMYOPATHY [None]
  - GRAFT VERSUS HOST DISEASE [None]
  - IDIOPATHIC PNEUMONIA SYNDROME [None]
  - DYSPNOEA [None]
  - ABDOMINAL PAIN [None]
  - CARDIAC FAILURE CONGESTIVE [None]
